FAERS Safety Report 14073097 (Version 1)
Quarter: 2017Q4

REPORT INFORMATION
  Report Type: Spontaneous
  Country: US (occurrence: US)
  Receive Date: 20171010
  Receipt Date: 20171010
  Transmission Date: 20180321
  Serious: No
  Sender: FDA-Public Use
  Company Number: US-JNJFOC-20170720278

PATIENT
  Sex: Female
  Weight: 58.97 kg

DRUGS (1)
  1. TYLENOL REGULAR STRENGTH [Suspect]
     Active Substance: ACETAMINOPHEN
     Indication: PAIN
     Dosage: ONLY ONCE
     Route: 048
     Dates: start: 20170722, end: 20170722

REACTIONS (4)
  - Hyperhidrosis [Recovered/Resolved]
  - Product size issue [Unknown]
  - Cold sweat [Recovered/Resolved]
  - Incorrect dose administered [Recovered/Resolved]

NARRATIVE: CASE EVENT DATE: 20170722
